FAERS Safety Report 13603911 (Version 1)
Quarter: 2017Q2

REPORT INFORMATION
  Report Type: Spontaneous
  Country: US (occurrence: US)
  Receive Date: 20170602
  Receipt Date: 20170602
  Transmission Date: 20170830
  Serious: Yes (Other)
  Sender: FDA-Public Use
  Company Number: US-TORRENT-00002775

PATIENT
  Age: 34 Year
  Sex: Female

DRUGS (3)
  1. ZONISAMIDE. [Concomitant]
     Active Substance: ZONISAMIDE
  2. GABAPENTIN. [Concomitant]
     Active Substance: GABAPENTIN
  3. LAMOTRIGINE. [Suspect]
     Active Substance: LAMOTRIGINE

REACTIONS (6)
  - Agitation [Unknown]
  - Toxicity to various agents [Unknown]
  - Ataxia [Unknown]
  - Seizure [Unknown]
  - Overdose [Unknown]
  - Aggression [Unknown]
